FAERS Safety Report 22783022 (Version 6)
Quarter: 2023Q4

REPORT INFORMATION
  Report Type: Spontaneous
  Country: US (occurrence: US)
  Receive Date: 20230803
  Receipt Date: 20231229
  Transmission Date: 20240110
  Serious: Yes (Hospitalization, Other)
  Sender: FDA-Public Use
  Company Number: US-SA-SAC20230801001301

PATIENT
  Age: 76 Year
  Sex: Female

DRUGS (2)
  1. DUPIXENT [Suspect]
     Active Substance: DUPILUMAB
     Indication: Dermatitis atopic
     Dosage: 600 MG, 1X
     Route: 058
     Dates: start: 20230727, end: 20230727
  2. DUPIXENT [Suspect]
     Active Substance: DUPILUMAB
     Dosage: 300 MG, QOW
     Route: 058
     Dates: start: 202308

REACTIONS (23)
  - Glaucoma [Unknown]
  - Intraocular pressure increased [Unknown]
  - Dermatitis atopic [Unknown]
  - Dry skin [Unknown]
  - Skin weeping [Unknown]
  - Skin disorder [Unknown]
  - Palpitations [Unknown]
  - Weight decreased [Unknown]
  - Food intolerance [Unknown]
  - Gastrointestinal disorder [Unknown]
  - Condition aggravated [Unknown]
  - Injection site rash [Unknown]
  - Injection site pruritus [Unknown]
  - Rash [Unknown]
  - Dry eye [Unknown]
  - Eczema [Unknown]
  - Drug ineffective [Unknown]
  - Injection site reaction [Unknown]
  - Injection site swelling [Unknown]
  - Skin ulcer [Unknown]
  - Injection site bruising [Unknown]
  - Injection site mass [Recovered/Resolved]
  - Injection site erythema [Unknown]

NARRATIVE: CASE EVENT DATE: 20231006
